FAERS Safety Report 5821961-X (Version None)
Quarter: 2008Q3

REPORT INFORMATION
  Report Type: 
  Country: None (occurrence: None)
  Receive Date: 20080724
  Receipt Date: 20080711
  Transmission Date: 20090109
  Serious: Yes (Death)
  Sender: FDA-Public Use
  Company Number: ES-GENENTECH-264608

PATIENT
  Age: 67 Year
  Sex: Male

DRUGS (1)
  1. AVASTIN [Suspect]
     Indication: COLON CANCER METASTATIC
     Dosage: 5MG/KG 1XPER CYCLE/25MG/ML
     Route: 042
     Dates: start: 20080204, end: 20080519

REACTIONS (1)
  - AORTO-OESOPHAGEAL FISTULA [None]
